FAERS Safety Report 20877021 (Version 1)
Quarter: 2022Q2

REPORT INFORMATION
  Report Type: Spontaneous
  Country: US (occurrence: None)
  Receive Date: 20220526
  Receipt Date: 20220526
  Transmission Date: 20220721
  Serious: Yes (Hospitalization)
  Sender: FDA-Public Use
  Company Number: None

PATIENT
  Age: 71 Year
  Sex: Female
  Weight: 76 kg

DRUGS (3)
  1. CYTARABINE [Suspect]
     Active Substance: CYTARABINE
     Dates: end: 20220519
  2. METHOTREXATE [Suspect]
     Active Substance: METHOTREXATE
     Dates: end: 20220517
  3. SPRYCEL [Suspect]
     Active Substance: DASATINIB
     Dates: end: 20220523

REACTIONS (4)
  - Chills [None]
  - Pyrexia [None]
  - Epistaxis [None]
  - Thrombocytopenia [None]

NARRATIVE: CASE EVENT DATE: 20220524
